FAERS Safety Report 20931439 (Version 1)
Quarter: 2022Q2

REPORT INFORMATION
  Report Type: Report from Study
  Country: EG (occurrence: EG)
  Receive Date: 20220608
  Receipt Date: 20220608
  Transmission Date: 20220721
  Serious: Yes (Other)
  Sender: FDA-Public Use
  Company Number: EG-NOVARTISPH-NVSC2022EG128022

PATIENT
  Age: 46 Year
  Sex: Male

DRUGS (7)
  1. ENTRESTO [Suspect]
     Active Substance: SACUBITRIL\VALSARTAN
     Indication: Cardiac failure
     Dosage: 100 MG, BID, (PATIENT DID NOT REMEMBER THE EXACT DATE)
     Route: 048
     Dates: start: 201904, end: 202106
  2. ENTRESTO [Suspect]
     Active Substance: SACUBITRIL\VALSARTAN
     Dosage: 100 MG, (STARTED FROM 1.5 TO 2 MONTHS AGO)
     Route: 048
  3. PLAVIX [Concomitant]
     Active Substance: CLOPIDOGREL BISULFATE
     Indication: Antiplatelet therapy
     Dosage: 1 DOSAGE FORM, QD, (STARTED 10 YEARS AGO)
     Route: 065
  4. PLAVIX [Concomitant]
     Active Substance: CLOPIDOGREL BISULFATE
     Indication: Prophylaxis
  5. JUSPRIN [Concomitant]
     Indication: Prophylaxis
     Dosage: 1 DOSAGE FORM, QD, (STARTED ABOUT 10 YEARS AGO)
     Route: 065
  6. NEBIVOLOL HYDROCHLORIDE [Concomitant]
     Active Substance: NEBIVOLOL HYDROCHLORIDE
     Indication: Muscle disorder
     Dosage: 1 DOSAGE FORM, QD, (DURING THE PERIOD OF STOPPING ENTRESTO (EXACT DATE IS UNKNOWN))
     Route: 065
  7. VASTAREL [Concomitant]
     Active Substance: TRIMETAZIDINE DIHYDROCHLORIDE
     Indication: Cardiac failure
     Dosage: 2 DOSAGE FORM, QD, DURING THE PERIOD OF STOPPING ENTRESTO (EXACT DATE IS UNKNOWN)
     Route: 065

REACTIONS (5)
  - Ejection fraction decreased [Unknown]
  - Pulmonary vein stenosis [Not Recovered/Not Resolved]
  - Dyspnoea [Recovering/Resolving]
  - Blood glucose abnormal [Not Recovered/Not Resolved]
  - Drug ineffective [Unknown]

NARRATIVE: CASE EVENT DATE: 20220401
